FAERS Safety Report 8358819-0 (Version None)
Quarter: 2012Q2

REPORT INFORMATION
  Report Type: 
  Country: None (occurrence: None)
  Receive Date: 20120515
  Receipt Date: 20120508
  Transmission Date: 20120825
  Serious: Yes (Other)
  Sender: FDA-Public Use
  Company Number: PHHY2012PT039482

PATIENT
  Age: 34 Year
  Sex: Female

DRUGS (6)
  1. FLUCLOXACILLIN [Suspect]
     Indication: ODYNOPHAGIA
  2. FLUCLOXACILLIN [Suspect]
     Indication: PYREXIA
     Dosage: UNK UKN, UNK
  3. AMOXICILLIN [Suspect]
     Indication: ODYNOPHAGIA
  4. CEFACLOR [Concomitant]
     Dosage: UNK UKN, UNK
  5. AMOXICILLIN [Suspect]
     Indication: PYREXIA
     Dosage: UNK UKN, UNK
  6. CLINDAMYCIN [Concomitant]
     Dosage: UNK UKN, UNK

REACTIONS (6)
  - DRUG RASH WITH EOSINOPHILIA AND SYSTEMIC SYMPTOMS [None]
  - PANNICULITIS [None]
  - SKIN MASS [None]
  - OEDEMA PERIPHERAL [None]
  - RASH [None]
  - GENERAL PHYSICAL HEALTH DETERIORATION [None]
